FAERS Safety Report 22280069 (Version 4)
Quarter: 2023Q4

REPORT INFORMATION
  Report Type: Spontaneous
  Country: US (occurrence: US)
  Receive Date: 20230503
  Receipt Date: 20231215
  Transmission Date: 20240110
  Serious: Yes (Hospitalization)
  Sender: FDA-Public Use
  Company Number: US-ELI_LILLY_AND_COMPANY-US202305001361

PATIENT
  Sex: Female
  Weight: 79.819 kg

DRUGS (16)
  1. TADALAFIL [Suspect]
     Active Substance: TADALAFIL
     Indication: Pulmonary arterial hypertension
     Dosage: UNK UNK, UNKNOWN
     Route: 065
  2. TYVASO [Suspect]
     Active Substance: TREPROSTINIL
     Indication: Pulmonary arterial hypertension
     Dosage: 64 UG, QID
     Route: 055
     Dates: start: 20221110
  3. TYVASO [Suspect]
     Active Substance: TREPROSTINIL
     Dosage: 64 UG, TWO TO THREE TIMES DAILY
     Route: 055
  4. TYVASO [Suspect]
     Active Substance: TREPROSTINIL
     Dosage: 16 UG, TWO TO THREE TIMES DAILY
     Route: 055
  5. TYVASO [Suspect]
     Active Substance: TREPROSTINIL
     Dosage: 32 UG, TWO TO THREE TIMES DAILY
     Route: 055
  6. TYVASO [Suspect]
     Active Substance: TREPROSTINIL
     Dosage: 32 UG, QID
     Route: 055
     Dates: start: 20221110
  7. TYVASO [Suspect]
     Active Substance: TREPROSTINIL
     Dosage: 16 UG, UNKNOWN
     Route: 055
  8. TYVASO [Suspect]
     Active Substance: TREPROSTINIL
     Dosage: 32 UG, QID
     Route: 065
     Dates: start: 20231203
  9. LASIX [Concomitant]
     Active Substance: FUROSEMIDE
     Indication: Product used for unknown indication
  10. ALBUTEROL SULFATE [Concomitant]
     Active Substance: ALBUTEROL SULFATE
     Indication: Product used for unknown indication
  11. HERBALS\TURMERIC [Concomitant]
     Active Substance: HERBALS\TURMERIC
     Indication: Product used for unknown indication
  12. OXYGEN [Concomitant]
     Active Substance: OXYGEN
     Indication: Product used for unknown indication
  13. ALBUTEROL SULFATE [Concomitant]
     Active Substance: ALBUTEROL SULFATE
     Indication: Product used for unknown indication
  14. VITAMIN B COMPLEX [Concomitant]
     Active Substance: CYANOCOBALAMIN\DEXPANTHENOL\NIACINAMIDE\PYRIDOXINE HYDROCHLORIDE\RIBOFLAVIN 5^-PHOSPHATE SODIUM\THIA
     Indication: Product used for unknown indication
  15. HERBALS [Concomitant]
     Active Substance: HERBALS
     Indication: Product used for unknown indication
  16. POTASSIUM CHLORIDE [Concomitant]
     Active Substance: POTASSIUM CHLORIDE
     Indication: Product used for unknown indication

REACTIONS (10)
  - COVID-19 [Unknown]
  - Seasonal allergy [Unknown]
  - Cough [Unknown]
  - Nasopharyngitis [Unknown]
  - Palpitations [Unknown]
  - Blood pressure increased [Unknown]
  - Dizziness [Unknown]
  - Headache [Unknown]
  - Fatigue [Unknown]
  - Malaise [Unknown]
